FAERS Safety Report 8790623 (Version 1)
Quarter: 2012Q4

REPORT INFORMATION
  Report Type: Spontaneous
  Country: US (occurrence: None)
  Receive Date: 20120912
  Receipt Date: 20120912
  Transmission Date: 20130627
  Serious: Yes (Other)
  Sender: FDA-Public Use
  Company Number: None

PATIENT
  Age: 70 Year
  Sex: Female
  Weight: 62.6 kg

DRUGS (1)
  1. SMX/TMP [Suspect]
     Indication: URINARY TRACT INFECTION
     Dosage: 2x daily
     Dates: start: 20120814

REACTIONS (1)
  - Swelling face [None]
